FAERS Safety Report 8432954-0 (Version None)
Quarter: 2012Q2

REPORT INFORMATION
  Report Type: 
  Country: None (occurrence: None)
  Receive Date: 20120613
  Receipt Date: 20120604
  Transmission Date: 20120825
  Serious: Yes (Other)
  Sender: FDA-Public Use
  Company Number: CN-ASTRAZENECA-2012SE35184

PATIENT
  Age: 40 Year
  Sex: Female

DRUGS (2)
  1. OMEPRAZOLE MAGNESIUM [Suspect]
     Route: 048
     Dates: start: 20120501
  2. LAMIVUDINE [Suspect]
     Indication: HEPATITIS B
     Route: 048

REACTIONS (7)
  - MELAENA [None]
  - ABDOMINAL DISTENSION [None]
  - NAUSEA [None]
  - DRY MOUTH [None]
  - DYSPHAGIA [None]
  - CONSTIPATION [None]
  - FATIGUE [None]
